FAERS Safety Report 4375238-2 (Version None)
Quarter: 2004Q2

REPORT INFORMATION
  Report Type: 
  Country: None (occurrence: None)
  Receive Date: 20040607
  Receipt Date: 20040510
  Transmission Date: 20050107
  Serious: No
  Sender: FDA-Public Use
  Company Number: 20040500302

PATIENT
  Age: 4 Year
  Sex: Female

DRUGS (2)
  1. PHENERGAN [Suspect]
     Indication: VOMITING
     Dosage: 20 MG ONCE IM
     Route: 030
     Dates: start: 20040502, end: 20040502
  2. TYLENOL [Concomitant]

REACTIONS (3)
  - INJECTION SITE IRRITATION [None]
  - INJECTION SITE VESICLES [None]
  - MEDICATION ERROR [None]
